FAERS Safety Report 7829206-6 (Version None)
Quarter: 2011Q4

REPORT INFORMATION
  Report Type: 
  Country: None (occurrence: None)
  Receive Date: 20111020
  Receipt Date: 20111016
  Transmission Date: 20120403
  Serious: Yes (Death, Hospitalization)
  Sender: FDA-Public Use
  Company Number: PHHO2011BG14623

PATIENT
  Sex: Male
  Weight: 83.8 kg

DRUGS (11)
  1. METOPROLOL TARTRATE [Concomitant]
     Indication: CARDIAC FAILURE CHRONIC
     Dosage: 100+50 MG
     Route: 048
     Dates: start: 20100315, end: 20110828
  2. METOPROLOL TARTRATE [Concomitant]
     Dosage: 25 MG, QD
     Route: 048
     Dates: start: 20111001, end: 20111015
  3. FUROSEMIDE [Concomitant]
     Indication: CARDIAC FAILURE CHRONIC
     Dosage: 20 MG, QD
     Route: 048
     Dates: start: 20100315, end: 20110909
  4. BLINDED NO TREATMENT RECEIVED [Suspect]
     Dosage: CODE NOT BROKEN
     Route: 048
     Dates: start: 20101105, end: 20110908
  5. CHLORTHALIDONE [Concomitant]
     Indication: CARDIAC FAILURE CHRONIC
     Dosage: 25 MG, QD
     Route: 048
     Dates: start: 20100315
  6. PIRACETAM [Concomitant]
     Indication: ISCHAEMIC STROKE
     Dosage: 1200 MG, BID
     Route: 048
     Dates: start: 20110901, end: 20110906
  7. ENALAPRIL MALEATE [Suspect]
     Dosage: CODE NOT BROKEN
     Route: 048
     Dates: start: 20101105, end: 20110908
  8. VALSARTAN [Suspect]
     Dosage: CODE NOT BROKEN
     Route: 048
     Dates: start: 20101105, end: 20110908
  9. PIRACETAM [Concomitant]
     Dosage: 1200 MG, BID
     Route: 048
     Dates: start: 20111001, end: 20111015
  10. DIGOXIN [Concomitant]
     Indication: CARDIAC FAILURE CHRONIC
     Dosage: 0.25 MG, BID
     Route: 048
     Dates: start: 20100315, end: 20110828
  11. SINTROM [Concomitant]
     Indication: ATRIAL FIBRILLATION
     Dosage: 1 MG, UNK
     Route: 048
     Dates: start: 20100901, end: 20110828

REACTIONS (5)
  - CONDITION AGGRAVATED [None]
  - DISEASE PROGRESSION [None]
  - ISCHAEMIC STROKE [None]
  - FEMUR FRACTURE [None]
  - CONCOMITANT DISEASE PROGRESSION [None]
